FAERS Safety Report 4440226-4 (Version None)
Quarter: 2004Q3

REPORT INFORMATION
  Report Type: 
  Country: None (occurrence: None)
  Receive Date: 20040831
  Receipt Date: 20040831
  Transmission Date: 20050211
  Serious: Yes (Hospitalization, Other)
  Sender: FDA-Public Use
  Company Number: None

PATIENT
  Sex: Male
  Weight: 80.7403 kg

DRUGS (1)
  1. TAXOL [Suspect]
     Indication: CORONARY ARTERY DISEASE
     Dosage: INTRA-ARTERIAL
     Route: 013
     Dates: start: 20040416, end: 20040830

REACTIONS (4)
  - ANAEMIA [None]
  - DIAPHRAGMATIC PARALYSIS [None]
  - FLUID RETENTION [None]
  - VENTRICULAR DYSFUNCTION [None]
